FAERS Safety Report 16199401 (Version 3)
Quarter: 2019Q3

REPORT INFORMATION
  Report Type: Report from Study
  Country: US (occurrence: US)
  Receive Date: 20190415
  Receipt Date: 20190911
  Transmission Date: 20191004
  Serious: Yes (Hospitalization)
  Sender: FDA-Public Use
  Company Number: US-ACTELION-A-NJ2018-174721

PATIENT
  Age: 69 Year
  Sex: Female
  Weight: 90.25 kg

DRUGS (3)
  1. UPTRAVI [Suspect]
     Active Substance: SELEXIPAG
     Indication: PULMONARY ARTERIAL HYPERTENSION
     Dosage: 1600 MCG, BID
     Route: 048
  2. LOSARTAN. [Suspect]
     Active Substance: LOSARTAN
     Indication: BLOOD PRESSURE ABNORMAL
     Route: 048
  3. AMLODIPINE [Concomitant]
     Active Substance: AMLODIPINE BESYLATE

REACTIONS (7)
  - Hepatic enzyme abnormal [Unknown]
  - Confusional state [Unknown]
  - Weight decreased [Unknown]
  - Disorientation [Unknown]
  - Pneumonia [Unknown]
  - Dizziness [Unknown]
  - Cataract operation [Unknown]

NARRATIVE: CASE EVENT DATE: 20180621
